APPROVED DRUG PRODUCT: ETRAVIRINE
Active Ingredient: ETRAVIRINE
Strength: 100MG
Dosage Form/Route: TABLET;ORAL
Application: A215402 | Product #001 | TE Code: AB
Applicant: CARNEGIE PHARMACEUTICALS LLC
Approved: Apr 13, 2022 | RLD: No | RS: No | Type: RX